FAERS Safety Report 21832003 (Version 8)
Quarter: 2023Q4

REPORT INFORMATION
  Report Type: Report from Study
  Country: US (occurrence: US)
  Receive Date: 20230106
  Receipt Date: 20231129
  Transmission Date: 20240110
  Serious: Yes (Hospitalization, Other)
  Sender: FDA-Public Use
  Company Number: US-MYLANLABS-2023M1000993

PATIENT
  Sex: Male
  Weight: 61.68 kg

DRUGS (23)
  1. LIPITOR [Suspect]
     Active Substance: ATORVASTATIN CALCIUM
     Indication: Hypertension
     Dosage: 20 MILLIGRAM, BID (20 MG TWICE A DAY)
     Route: 065
  2. LIPITOR [Suspect]
     Active Substance: ATORVASTATIN CALCIUM
     Indication: Blood cholesterol
     Dosage: 10 MILLIGRAM
     Route: 065
  3. ACETAMINOPHEN [Suspect]
     Active Substance: ACETAMINOPHEN
     Indication: Pain
     Dosage: 650 MILLIGRAM, BID (650 MG TWICE A DAY)
     Route: 065
  4. ACETAMINOPHEN [Suspect]
     Active Substance: ACETAMINOPHEN
     Indication: Spinal stenosis
  5. ELIQUIS [Suspect]
     Active Substance: APIXABAN
     Indication: Blood disorder
     Dosage: 5 MILLIGRAM, BID (5MG TWICE A DAY)
     Route: 065
  6. ELIQUIS [Suspect]
     Active Substance: APIXABAN
     Indication: Atrial fibrillation
  7. XTANDI [Suspect]
     Active Substance: ENZALUTAMIDE
     Indication: Neoplasm malignant
     Dosage: 160 MILLIGRAM, QD (1 A DAY)
     Route: 065
  8. XTANDI [Suspect]
     Active Substance: ENZALUTAMIDE
     Dosage: 250 MILLIGRAM, BID (250 MG TWICE A DAY)
     Route: 065
  9. TIKOSYN [Suspect]
     Active Substance: DOFETILIDE
     Indication: Atrial fibrillation
     Dosage: 250 MILLIGRAM, BID (250 MG TWICE A DAY)
     Route: 065
  10. XTANDI [Suspect]
     Active Substance: ENZALUTAMIDE
     Indication: Bone cancer
     Dosage: 160 MILLIGRAM, QD
     Route: 048
     Dates: start: 2022, end: 20230119
  11. XTANDI [Suspect]
     Active Substance: ENZALUTAMIDE
     Indication: Prostate cancer
     Dosage: 160 MILLIGRAM
     Route: 048
     Dates: start: 20230130
  12. XTANDI [Suspect]
     Active Substance: ENZALUTAMIDE
     Dosage: 250 MILLIGRAM, BID
     Route: 048
     Dates: start: 20230130
  13. XTANDI [Suspect]
     Active Substance: ENZALUTAMIDE
     Dosage: 160 MILLIGRAM, QD
     Route: 048
     Dates: start: 2022
  14. METOPROLOL TARTRATE [Concomitant]
     Active Substance: METOPROLOL TARTRATE
     Indication: Heart rate abnormal
     Dosage: 25 MILLIGRAM, BID (25 MG TWICE A DAY)
     Route: 065
  15. METOPROLOL TARTRATE [Concomitant]
     Active Substance: METOPROLOL TARTRATE
     Indication: Heart rate decreased
     Dosage: 25 MILLIGRAM
     Route: 065
  16. METOPROLOL TARTRATE [Concomitant]
     Active Substance: METOPROLOL TARTRATE
     Indication: Bradycardia
  17. XANAX [Concomitant]
     Active Substance: ALPRAZOLAM
     Dosage: UNK
     Route: 065
  18. TYLENOL [Suspect]
     Active Substance: ACETAMINOPHEN
     Indication: Pain
     Dosage: 650 MILLIGRAM
     Route: 065
  19. TYLENOL [Suspect]
     Active Substance: ACETAMINOPHEN
     Indication: Spinal stenosis
     Dosage: 625 MILLIGRAM, BID (625 MG TWICE A DAY)
     Route: 065
  20. HYDROCHLOROTHIAZIDE [Concomitant]
     Active Substance: HYDROCHLOROTHIAZIDE
     Dosage: 12.5 MILLIGRAM
     Route: 065
  21. HYDROCHLOROTHIAZIDE [Concomitant]
     Active Substance: HYDROCHLOROTHIAZIDE
     Dosage: 12.5 MILLIGRAM
     Route: 065
  22. APIXABAN [Concomitant]
     Active Substance: APIXABAN
     Dosage: UNK
     Route: 065
  23. DOFETILIDE [Concomitant]
     Active Substance: DOFETILIDE
     Dosage: UNK
     Route: 065

REACTIONS (11)
  - Atrial fibrillation [Unknown]
  - Back pain [Not Recovered/Not Resolved]
  - Pain in extremity [Not Recovered/Not Resolved]
  - Malignant neoplasm progression [Unknown]
  - Fatigue [Unknown]
  - Arthritis [Unknown]
  - Neuropathy peripheral [Unknown]
  - Nervous system disorder [Unknown]
  - Overdose [Unknown]
  - Product use issue [Unknown]
  - Product availability issue [Unknown]
